FAERS Safety Report 9342278 (Version 4)
Quarter: 2013Q2

REPORT INFORMATION
  Report Type: Spontaneous
  Country: JP (occurrence: JP)
  Receive Date: 20130611
  Receipt Date: 20130627
  Transmission Date: 20140414
  Serious: Yes (Life-Threatening, Other)
  Sender: FDA-Public Use
  Company Number: JP-PFIZER INC-2012296175

PATIENT
  Age: 83 Year
  Sex: Male
  Weight: 75 kg

DRUGS (14)
  1. ZOSYN [Suspect]
     Indication: PNEUMONIA
     Dosage: 4.5 G, 3X/DAY
     Route: 041
     Dates: start: 20121116, end: 20121120
  2. WARFARIN POTASSIUM [Interacting]
     Indication: CARDIAC VALVE DISEASE
     Dosage: 3 MG, DAILY
     Route: 048
     Dates: end: 20121120
  3. PATYUNA [Concomitant]
     Dosage: 100 MG, 1X/DAY
     Route: 048
  4. PARIET [Concomitant]
     Dosage: 10 MG, 1X/DAY
     Route: 048
  5. ZYLORIC [Concomitant]
     Dosage: 100 MG, 1X/DAY
     Route: 048
  6. LUPRAC [Concomitant]
     Dosage: 4 MG, 1X/DAY
     Route: 048
  7. FUROSEMIDE [Concomitant]
     Dosage: 50 MG, 1X/DAY
     Route: 048
  8. SPIRONOLACTONE [Concomitant]
     Dosage: 25 MG, 1X/DAY
     Route: 048
  9. FLUITRAN [Concomitant]
     Dosage: 1 MG, 1X/DAY
     Route: 048
  10. FERRUM [Concomitant]
     Dosage: 200 MG, 1X/DAY
     Route: 048
  11. HICEE [Concomitant]
     Dosage: 2 G, 1X/DAY
     Route: 048
  12. LAC-B [Concomitant]
     Dosage: 3 G, 1X/DAY
     Route: 048
  13. BICALUTAMIDE [Concomitant]
     Dosage: 80 MG, 1X/DAY
     Route: 048
  14. TAMSULOSIN [Concomitant]
     Dosage: 0.2 MG, 1X/DAY
     Route: 048

REACTIONS (5)
  - Haemorrhagic diathesis [Recovered/Resolved]
  - Coagulation factor V level decreased [Recovered/Resolved]
  - Prothrombin time prolonged [Unknown]
  - Activated partial thromboplastin time prolonged [Unknown]
  - Drug interaction [Unknown]
